FAERS Safety Report 12637381 (Version 2)
Quarter: 2016Q3

REPORT INFORMATION
  Report Type: Spontaneous
  Country: US (occurrence: US)
  Receive Date: 20160809
  Receipt Date: 20160824
  Transmission Date: 20161109
  Serious: No
  Sender: FDA-Public Use
  Company Number: US-BEH-2016059043

PATIENT
  Sex: Female

DRUGS (53)
  1. OXYBUTYNIN CHLORIDE. [Concomitant]
     Active Substance: OXYBUTYNIN CHLORIDE
     Dosage: 15 MG, QD
     Route: 048
  2. FLUDROCORTISONE ACETATE. [Concomitant]
     Active Substance: FLUDROCORTISONE ACETATE
     Dosage: 0.1 MG, QD
     Route: 048
  3. GUAIFENESIN/CODEINE [Concomitant]
     Active Substance: CODEINE PHOSPHATE\GUAIFENESIN
     Indication: COUGH
     Dosage: 100-10MG/5ML, PRN EVERY 6 HRS
     Route: 065
  4. VALACYCLOVIR HCL [Concomitant]
     Active Substance: VALACYCLOVIR HYDROCHLORIDE
     Dosage: 1 MG, QD
     Route: 048
  5. MODAFINIL. [Concomitant]
     Active Substance: MODAFINIL
     Dosage: 200 MG, QD
     Route: 048
  6. OLOPATADINE HYDROCHLORIDE. [Concomitant]
     Active Substance: OLOPATADINE HYDROCHLORIDE
     Dosage: 1 DROP, BID
     Route: 047
  7. NATEGLINIDE. [Concomitant]
     Active Substance: NATEGLINIDE
     Dosage: 60 MG, FIVE TIMES A DAY
     Route: 048
  8. SUDAFED [Concomitant]
     Active Substance: PSEUDOEPHEDRINE HYDROCHLORIDE
     Dosage: 30 MG, PRN EVERY 6 HRS
     Route: 048
  9. PERTZYE [Concomitant]
     Active Substance: PANCRELIPASE AMYLASE\PANCRELIPASE LIPASE\PANCRELIPASE PROTEASE
     Dosage: 16000 IU, TID
     Route: 048
  10. PROMETHAZINE HCL [Concomitant]
     Active Substance: PROMETHAZINE HYDROCHLORIDE
     Dosage: 25 MG, QD
     Route: 048
  11. EPIPEN [Concomitant]
     Active Substance: EPINEPHRINE
     Dosage: 0.3 MG/0.3 ML, UNK
     Route: 065
  12. LIDODERM [Concomitant]
     Active Substance: LIDOCAINE
     Dosage: 2 PATCH, QD
     Route: 061
  13. DORNASE ALFA [Concomitant]
     Active Substance: DORNASE ALFA
     Dosage: 1 MG, QD
     Route: 055
  14. KETOCONAZOLE. [Concomitant]
     Active Substance: KETOCONAZOLE
     Dosage: 1 APPLICATION, QD
     Route: 065
  15. PRIVIGEN [Suspect]
     Active Substance: HUMAN IMMUNOGLOBULIN G
     Indication: PRODUCT USED FOR UNKNOWN INDICATION
     Route: 065
  16. DEXLANSOPRAZOLE [Concomitant]
     Active Substance: DEXLANSOPRAZOLE
     Dosage: 60 MG, QD
     Route: 048
  17. REPAGLINIDE. [Concomitant]
     Active Substance: REPAGLINIDE
     Dosage: 2 MG, TID
     Route: 048
  18. LEVALBUTEROL HCL [Concomitant]
     Active Substance: LEVALBUTEROL HYDROCHLORIDE
     Dosage: 0.63 MG/3ML, TID
     Route: 055
  19. MONTELUKAST SODIUM. [Concomitant]
     Active Substance: MONTELUKAST SODIUM
     Dosage: 10 MG, QD
     Route: 048
  20. ENTEX                              /00567601/ [Concomitant]
     Dosage: 60-375 MG, PRN EVERY 6 HRS
     Route: 048
  21. CLONAZEPAM. [Concomitant]
     Active Substance: CLONAZEPAM
     Dosage: 1 MG, PRN UP TO BIW
     Route: 048
  22. LIDOCAINE. [Concomitant]
     Active Substance: LIDOCAINE
     Indication: PAIN
     Dosage: 1-2 PATCHES, QD
     Route: 061
  23. SCOPOLAMINE                        /00008701/ [Concomitant]
     Active Substance: SCOPOLAMINE
     Indication: VERTIGO
     Dosage: 1.5 MG, PRN EVERY 3 DAYS
     Route: 062
  24. MOMETASONE FUROATE. [Concomitant]
     Active Substance: MOMETASONE FUROATE
     Dosage: 1 PUFF, QD
     Route: 055
  25. GLUCOSAMINE CHONDROITIN COMPLEX    /06278301/ [Concomitant]
     Dosage: UNK
     Route: 048
  26. METRONIDAZOLE. [Concomitant]
     Active Substance: METRONIDAZOLE
     Indication: ACNE
     Dosage: UNK, QD
     Route: 061
  27. DETROL [Concomitant]
     Active Substance: TOLTERODINE TARTRATE
     Dosage: 4 NG, QD
     Route: 065
  28. ATORVASTATIN CALCIUM. [Concomitant]
     Active Substance: ATORVASTATIN CALCIUM
     Dosage: 80 MG, QD
     Route: 048
  29. DULOXETINE HYDROCHLORIDE. [Concomitant]
     Active Substance: DULOXETINE HYDROCHLORIDE
     Dosage: 30 MG, QD
     Route: 048
  30. VITAMIN C [Concomitant]
     Active Substance: ASCORBIC ACID
     Dosage: 1000 MG, QD
     Route: 048
  31. PREGABALIN. [Concomitant]
     Active Substance: PREGABALIN
     Dosage: 225 MG, BID
     Route: 048
  32. FEXOFENADINE HCL [Concomitant]
     Active Substance: FEXOFENADINE HYDROCHLORIDE
     Dosage: 60 MG, BID
     Route: 048
  33. NYSTATIN W/TRIAMCINOLONE           /00945901/ [Concomitant]
     Dosage: 1 APPLICATION, BID
     Route: 065
  34. BISACODYL. [Concomitant]
     Active Substance: BISACODYL
     Indication: CONSTIPATION
     Dosage: 10 MG, PRN
     Route: 048
  35. OXYCODONE HYDROCHLORIDE. [Concomitant]
     Active Substance: OXYCODONE HYDROCHLORIDE
     Dosage: 10 MG, EVERY 8-12 HRS
     Route: 048
  36. METAXALONE. [Concomitant]
     Active Substance: METAXALONE
     Dosage: 800 MG, Q4H
     Route: 048
  37. OXYBUTYNIN CHLORIDE. [Concomitant]
     Active Substance: OXYBUTYNIN CHLORIDE
     Dosage: 10 MG, QD
     Route: 048
  38. PREDNISONE. [Concomitant]
     Active Substance: PREDNISONE
     Dosage: 5 MG, QD
     Route: 048
  39. DULOXETINE HYDROCHLORIDE. [Concomitant]
     Active Substance: DULOXETINE HYDROCHLORIDE
     Dosage: 60 MG, QD
     Route: 048
  40. ALBUTEROL SULFATE. [Concomitant]
     Active Substance: ALBUTEROL SULFATE
     Dosage: 2 PUFFS, PRN EVERY 4 HRS
     Route: 055
  41. POLYETHYLENE GLYCOL 3350. [Concomitant]
     Active Substance: POLYETHYLENE GLYCOL 3350
     Dosage: AS DIRECTED
     Route: 048
  42. NYSTATIN. [Concomitant]
     Active Substance: NYSTATIN
     Dosage: 100000 IU/G, UNK
     Route: 065
  43. COLESTIPOL HYDROCHLORIDE. [Concomitant]
     Active Substance: COLESTIPOL HYDROCHLORIDE
     Dosage: 1 G, BID
     Route: 048
  44. LYRICA [Concomitant]
     Active Substance: PREGABALIN
     Dosage: 225 MG, BID
     Route: 065
  45. CLONAZEPAM. [Concomitant]
     Active Substance: CLONAZEPAM
     Indication: PANIC ATTACK
     Dosage: 1 MG, QD
     Route: 048
  46. BUSPIRONE HCL [Concomitant]
     Active Substance: BUSPIRONE HYDROCHLORIDE
     Dosage: 15 MG, BID
     Route: 048
  47. SALINE                             /00075401/ [Concomitant]
     Active Substance: SODIUM CHLORIDE
     Dosage: UNK
     Route: 045
  48. AQUADEKS [Concomitant]
     Active Substance: MINERALS\VITAMINS
     Dosage: 1 MG, QD
     Route: 048
  49. GLUCOSE [Concomitant]
     Active Substance: DEXTROSE
     Dosage: UNK
     Route: 065
  50. CICLESONIDE [Concomitant]
     Active Substance: CICLESONIDE
     Dosage: 2 PUFFS, QD
     Route: 045
  51. DHEA [Concomitant]
     Active Substance: PRASTERONE
     Dosage: 50 MG, AS DIRECTED
     Route: 048
  52. FLUDROCORTISONE ACETATE. [Concomitant]
     Active Substance: FLUDROCORTISONE ACETATE
     Dosage: 0.1 MG, TIW
     Route: 048
  53. SKELAXIN [Concomitant]
     Active Substance: METAXALONE
     Dosage: 800 MG, FOUR TIMES A DAY
     Route: 065

REACTIONS (1)
  - Drug hypersensitivity [Unknown]
